FAERS Safety Report 9760394 (Version 3)
Quarter: 2015Q3

REPORT INFORMATION
  Report Type: Spontaneous
  Country: US (occurrence: US)
  Receive Date: 20131216
  Receipt Date: 20150806
  Transmission Date: 20151125
  Serious: No
  Sender: FDA-Public Use
  Company Number: US-GILEAD-2010-0029379

PATIENT
  Age: 74 Year
  Sex: Female
  Weight: 63.6 kg

DRUGS (16)
  1. LETAIRIS [Suspect]
     Active Substance: AMBRISENTAN
     Indication: PULMONARY ARTERIAL HYPERTENSION
     Route: 048
     Dates: start: 20100216, end: 201007
  2. FLONASE [Concomitant]
     Active Substance: FLUTICASONE PROPIONATE
  3. ARIMIDEX [Concomitant]
     Active Substance: ANASTROZOLE
  4. AZATHIOPRINE. [Concomitant]
     Active Substance: AZATHIOPRINE
  5. CALTRATE +D [Concomitant]
  6. KLOR-CON M20 [Concomitant]
     Active Substance: POTASSIUM CHLORIDE
  7. CENTRUM SILVER [Concomitant]
     Active Substance: VITAMINS
  8. RECLAST [Concomitant]
     Active Substance: ZOLEDRONIC ACID
  9. HYDROXYCHOLR [Concomitant]
  10. MIRALAX [Concomitant]
     Active Substance: POLYETHYLENE GLYCOL 3350
  11. LASIX [Concomitant]
     Active Substance: FUROSEMIDE
  12. ADVIL [Concomitant]
     Active Substance: IBUPROFEN
  13. BABY ASPIRIN [Concomitant]
     Active Substance: ASPIRIN
  14. SYNTHROID [Concomitant]
     Active Substance: LEVOTHYROXINE SODIUM
  15. LOTREL [Concomitant]
     Active Substance: AMLODIPINE BESYLATE\BENAZEPRIL HYDROCHLORIDE
  16. NEXIUM [Concomitant]
     Active Substance: ESOMEPRAZOLE MAGNESIUM

REACTIONS (3)
  - Hypersensitivity [Unknown]
  - Lip swelling [Not Recovered/Not Resolved]
  - Oral mucosal erythema [Not Recovered/Not Resolved]

NARRATIVE: CASE EVENT DATE: 201003
